FAERS Safety Report 23404512 (Version 2)
Quarter: 2024Q1

REPORT INFORMATION
  Report Type: Spontaneous
  Country: US (occurrence: US)
  Receive Date: 20240116
  Receipt Date: 20240125
  Transmission Date: 20240409
  Serious: Yes (Other)
  Sender: FDA-Public Use
  Company Number: US-TEYRO-2024-TY-000005

PATIENT

DRUGS (6)
  1. CARBOPLATIN [Suspect]
     Active Substance: CARBOPLATIN
     Indication: Triple negative breast cancer
     Dosage: 3 CYCLES, AUC 6 ON DAY 1 OF A 21-DAY CYCLE
     Route: 065
  2. CARBOPLATIN [Suspect]
     Active Substance: CARBOPLATIN
     Dosage: 3 CYCLES, (TOTAL 6 CYCLES FOR 12.5 MONTHS)
     Route: 065
  3. PACLITAXEL [Suspect]
     Active Substance: PACLITAXEL
     Indication: Triple negative breast cancer
     Dosage: 3 CYCLES, 100 MG/M2 VIA INTRAVENOUS ON DAYS 1, 8 AND 15 OF A 21-DAY CYCLE
     Route: 042
  4. PACLITAXEL [Suspect]
     Active Substance: PACLITAXEL
     Dosage: 3 CYCLES, (TOTAL 6 CYCLES FOR 12.5 MONTHS)
     Route: 065
  5. PEMBROLIZUMAB [Suspect]
     Active Substance: PEMBROLIZUMAB
     Indication: Triple negative breast cancer
     Dosage: THREE CYCLES, 200 MG VIA INTRAVENOUS ON DAY 15 OF EACH CYCLE
     Route: 042
  6. PEMBROLIZUMAB [Suspect]
     Active Substance: PEMBROLIZUMAB
     Dosage: 3 CYCLES, (TOTAL 6 CYCLES FOR 12.5 MONTHS)
     Route: 065

REACTIONS (2)
  - Pneumonitis [Unknown]
  - Off label use [Unknown]
